FAERS Safety Report 9531627 (Version 1)
Quarter: 2013Q3

REPORT INFORMATION
  Report Type: Report from Study
  Country: BR (occurrence: BR)
  Receive Date: 20130918
  Receipt Date: 20130918
  Transmission Date: 20140515
  Serious: Yes (Hospitalization)
  Sender: FDA-Public Use
  Company Number: BR-ROCHE-1276602

PATIENT
  Age: 73 Year
  Sex: Female

DRUGS (9)
  1. XOLAIR [Suspect]
     Indication: ASTHMA
     Route: 065
  2. PREDNISONE [Concomitant]
     Dosage: 10 MG/DAILY FROM 1 YEAR AGO
     Route: 065
  3. MONTELUKAST [Concomitant]
     Route: 065
  4. BUDESONIDE [Concomitant]
  5. FORMOTEROL [Concomitant]
  6. LORATADINE [Concomitant]
  7. BECLOMETHASONE [Concomitant]
  8. LEXAPRO [Concomitant]
  9. SALBUTAMOL [Concomitant]

REACTIONS (2)
  - Asthma [Unknown]
  - Pulmonary function test abnormal [Unknown]
